FAERS Safety Report 12245711 (Version 3)
Quarter: 2016Q2

REPORT INFORMATION
  Report Type: Report from Study
  Country: US (occurrence: US)
  Receive Date: 20160407
  Receipt Date: 20160422
  Transmission Date: 20160815
  Serious: No
  Sender: FDA-Public Use
  Company Number: US-AMGEN-USASL2016042232

PATIENT
  Age: 63 Year
  Sex: Female

DRUGS (1)
  1. ENBREL [Suspect]
     Active Substance: ETANERCEPT
     Indication: RHEUMATOID ARTHRITIS
     Dosage: 50 MG, ONCE A WEEK
     Route: 065
     Dates: start: 20160331

REACTIONS (9)
  - Injection site pruritus [Unknown]
  - Device issue [Unknown]
  - Underdose [Unknown]
  - Injection site reaction [Unknown]
  - Wrong technique in product usage process [Unknown]
  - Injection site rash [Unknown]
  - Injection site extravasation [Unknown]
  - Chromaturia [Unknown]
  - Injection site haemorrhage [Unknown]

NARRATIVE: CASE EVENT DATE: 2016
